FAERS Safety Report 20425280 (Version 1)
Quarter: 2022Q1

REPORT INFORMATION
  Report Type: Report from Study
  Country: CA (occurrence: CA)
  Receive Date: 20220204
  Receipt Date: 20220204
  Transmission Date: 20220423
  Serious: No
  Sender: FDA-Public Use
  Company Number: CA-EXELIXIS-CABO-21038460

PATIENT
  Sex: Female

DRUGS (8)
  1. CABOMETYX [Suspect]
     Active Substance: CABOZANTINIB S-MALATE
     Indication: Renal cell carcinoma
     Dosage: 40 MG, QD (21 DAYS ON, 7 DAYS OFF)
     Route: 048
     Dates: start: 20181016
  2. CABOMETYX [Suspect]
     Active Substance: CABOZANTINIB S-MALATE
     Dosage: 40 MG, QD (14 DAYS ON, 7 DAYS OFF)
     Route: 048
  3. CABOMETYX [Suspect]
     Active Substance: CABOZANTINIB S-MALATE
     Dosage: 40 MG,QD
     Route: 048
  4. SYNTHROID [Concomitant]
     Active Substance: LEVOTHYROXINE SODIUM
  5. LORAZEPAM [Concomitant]
     Active Substance: LORAZEPAM
  6. PRAVASTATIN [Concomitant]
     Active Substance: PRAVASTATIN
  7. EFFEXOR [Concomitant]
     Active Substance: VENLAFAXINE HYDROCHLORIDE
  8. VITAMIN B [Concomitant]
     Active Substance: VITAMIN B

REACTIONS (3)
  - Thyroid disorder [Unknown]
  - Blood calcium decreased [Unknown]
  - Inappropriate schedule of product administration [Unknown]
